FAERS Safety Report 6077028-1 (Version None)
Quarter: 2009Q1

REPORT INFORMATION
  Report Type: 
  Country: None (occurrence: None)
  Receive Date: 20090213
  Receipt Date: 20090211
  Transmission Date: 20090719
  Serious: Yes (Other)
  Sender: FDA-Public Use
  Company Number: NL-ASTRAZENECA-2009AC00554

PATIENT
  Age: 8874 Day
  Sex: Female

DRUGS (2)
  1. SEROQUEL XR [Suspect]
     Indication: ANXIETY
     Dosage: 9000 MG
     Route: 048
     Dates: start: 20090209, end: 20090209
  2. SEROQUEL XR [Suspect]
     Indication: DEPRESSION
     Dosage: 9000 MG
     Route: 048
     Dates: start: 20090209, end: 20090209

REACTIONS (4)
  - DELIRIUM [None]
  - DISORIENTATION [None]
  - LOSS OF CONSCIOUSNESS [None]
  - OVERDOSE [None]
